FAERS Safety Report 12199297 (Version 2)
Quarter: 2019Q2

REPORT INFORMATION
  Report Type: Spontaneous
  Country: US (occurrence: US)
  Receive Date: 20160322
  Receipt Date: 20190514
  Transmission Date: 20190711
  Serious: No
  Sender: FDA-Public Use
  Company Number: US-PFIZER INC-2016111991

PATIENT
  Sex: Female

DRUGS (34)
  1. DICLOFENAC SODIUM. [Suspect]
     Active Substance: DICLOFENAC SODIUM
     Dosage: UNK
  2. PHENAPHEN NO. 3 [Suspect]
     Active Substance: ASPIRIN\CODEINE PHOSPHATE\HYOSCYAMINE SULFATE\PHENACETIN\PHENOBARBITAL
     Dosage: UNK
  3. BETAMETHASONE. [Suspect]
     Active Substance: BETAMETHASONE
     Dosage: UNK
  4. PAMELOR [Suspect]
     Active Substance: NORTRIPTYLINE HYDROCHLORIDE
     Dosage: UNK
  5. CODEINE [Suspect]
     Active Substance: CODEINE
     Dosage: UNK
  6. ACCUPRIL [Suspect]
     Active Substance: QUINAPRIL HYDROCHLORIDE
     Dosage: UNK
  7. VERAPAMIL HCL [Suspect]
     Active Substance: VERAPAMIL HYDROCHLORIDE
     Dosage: UNK
  8. DEMEROL [Suspect]
     Active Substance: MEPERIDINE HYDROCHLORIDE
     Dosage: UNK
  9. LUNESTA [Suspect]
     Active Substance: ESZOPICLONE
     Dosage: UNK
  10. SINEQUAN [Suspect]
     Active Substance: DOXEPIN HYDROCHLORIDE
     Dosage: UNK
  11. MEPERIDINE HCL [Suspect]
     Active Substance: MEPERIDINE HYDROCHLORIDE
     Dosage: UNK
  12. THIOPENTAL SODIUM. [Suspect]
     Active Substance: THIOPENTAL SODIUM
     Dosage: UNK
  13. WELLBUTRIN [Suspect]
     Active Substance: BUPROPION HYDROCHLORIDE
     Dosage: UNK
  14. WYDASE [Suspect]
     Active Substance: HYALURONIDASE
     Dosage: UNK
  15. LORATADINE. [Suspect]
     Active Substance: LORATADINE
     Dosage: UNK
  16. THORAZINE [Suspect]
     Active Substance: CHLORPROMAZINE
     Dosage: UNK
  17. QUININE SULFATE. [Suspect]
     Active Substance: QUININE SULFATE
     Dosage: UNK
  18. PLENDIL [Suspect]
     Active Substance: FELODIPINE
     Dosage: UNK
  19. PERCODAN [Suspect]
     Active Substance: ASPIRIN\OXYCODONE HYDROCHLORIDE
     Dosage: UNK
  20. VOLTAREN [DICLOFENAC EPOLAMINE] [Suspect]
     Active Substance: DICLOFENAC EPOLAMINE
     Dosage: UNK
  21. BENZOCAINE/TRIMETHOBENZAMIDE HYDROCHLORIDE [Suspect]
     Active Substance: BENZOCAINE\TRIMETHOBENZAMIDE HYDROCHLORIDE
     Dosage: UNK
  22. TIGAN [Suspect]
     Active Substance: TRIMETHOBENZAMIDE HYDROCHLORIDE
     Dosage: UNK
  23. NORTRIPTYLINE [Suspect]
     Active Substance: NORTRIPTYLINE
     Dosage: UNK
  24. SULAR [Suspect]
     Active Substance: NISOLDIPINE
     Dosage: UNK
  25. VALIUM [Suspect]
     Active Substance: DIAZEPAM
     Dosage: UNK
  26. CROMOLYN [CROMOGLICATE SODIUM] [Suspect]
     Active Substance: CROMOLYN SODIUM
     Dosage: UNK
  27. INDERAL [Suspect]
     Active Substance: PROPRANOLOL HYDROCHLORIDE
     Dosage: UNK
  28. OXYCODONE AND ASPIRIN [ASPIRIN\OXYCODONE HYDROCHLORIDE\OXYCODONE TEREPHTHALATE] [Suspect]
     Active Substance: ASPIRIN\OXYCODONE HYDROCHLORIDE\OXYCODONE TEREPHTHALATE
     Dosage: UNK
  29. DURICEF [Suspect]
     Active Substance: CEFADROXIL
     Dosage: UNK
  30. NEMBUTAL SODIUM [Suspect]
     Active Substance: PENTOBARBITAL SODIUM
     Dosage: UNK
  31. DILAUDID [Suspect]
     Active Substance: HYDROMORPHONE HYDROCHLORIDE
     Dosage: UNK
  32. ALOCRIL [Suspect]
     Active Substance: NEDOCROMIL SODIUM
     Dosage: UNK
  33. CARBOCAINE [Suspect]
     Active Substance: MEPIVACAINE HYDROCHLORIDE
     Dosage: UNK
  34. VERAMYST [Suspect]
     Active Substance: FLUTICASONE FUROATE
     Dosage: UNK

REACTIONS (1)
  - Drug hypersensitivity [Unknown]
